FAERS Safety Report 9220729 (Version 1)
Quarter: 2013Q2

REPORT INFORMATION
  Report Type: Spontaneous
  Country: DE (occurrence: DE)
  Receive Date: 20130409
  Receipt Date: 20130409
  Transmission Date: 20140414
  Serious: Yes (Congenital Anomaly, Other)
  Sender: FDA-Public Use
  Company Number: DE-TEVA-394915GER

PATIENT
  Sex: Male

DRUGS (3)
  1. FLUOXETIN [Suspect]
     Route: 064
  2. LAMICTAL [Suspect]
     Route: 064
  3. CYMBALTA [Suspect]
     Route: 064

REACTIONS (3)
  - Atrial septal defect [Not Recovered/Not Resolved]
  - Agitation neonatal [Recovered/Resolved]
  - Neonatal respiratory distress syndrome [Recovered/Resolved]
